FAERS Safety Report 6256703-X (Version None)
Quarter: 2009Q3

REPORT INFORMATION
  Report Type: 
  Country: None (occurrence: None)
  Receive Date: 20090706
  Receipt Date: 20090625
  Transmission Date: 20100115
  Serious: Yes (Other)
  Sender: FDA-Public Use
  Company Number: US-BIOGENIDEC-2009BI014078

PATIENT
  Age: 53 Year
  Sex: Female

DRUGS (7)
  1. TYSABRI [Suspect]
     Indication: MULTIPLE SCLEROSIS
     Route: 042
     Dates: start: 20050203, end: 20050201
  2. TYSABRI [Suspect]
     Route: 042
     Dates: start: 20061031
  3. LYRICA [Concomitant]
  4. ZOLOFT [Concomitant]
  5. AMBIEN [Concomitant]
     Route: 048
  6. ARICEPT [Concomitant]
     Route: 048
  7. PAIN MEDICATION (NOS) [Concomitant]
     Indication: PAIN

REACTIONS (6)
  - ABASIA [None]
  - BEDRIDDEN [None]
  - FALL [None]
  - PAIN [None]
  - PELVIC FRACTURE [None]
  - URINARY TRACT INFECTION [None]
